FAERS Safety Report 7879291-0 (Version None)
Quarter: 2011Q4

REPORT INFORMATION
  Report Type: 
  Country: None (occurrence: None)
  Receive Date: 20111101
  Receipt Date: 20111021
  Transmission Date: 20120403
  Serious: Yes (Hospitalization)
  Sender: FDA-Public Use
  Company Number: US-BAYER-2011-055235

PATIENT
  Age: 29 Year
  Sex: Female
  Weight: 109 kg

DRUGS (4)
  1. DROSPIRENONE AND ETHINYL ESTRADIOL [Suspect]
     Dosage: UNK
     Dates: start: 20080101, end: 20090101
  2. HYDROCHLOROTHIAZIDE [Concomitant]
     Dosage: 25 MG, QD
  3. IBUPROFEN [Concomitant]
  4. YAZ [Suspect]
     Dosage: UNK
     Dates: start: 20080101, end: 20090101

REACTIONS (4)
  - CHOLECYSTITIS [None]
  - INJURY [None]
  - GALLBLADDER DISORDER [None]
  - PAIN [None]
